FAERS Safety Report 4567543-1 (Version None)
Quarter: 2005Q1

REPORT INFORMATION
  Report Type: 
  Country: None (occurrence: None)
  Receive Date: 20050127
  Receipt Date: 20050111
  Transmission Date: 20050727
  Serious: Yes (Other)
  Sender: FDA-Public Use
  Company Number: PHBS2005IT01100

PATIENT
  Age: 59 Year
  Sex: Male

DRUGS (1)
  1. VISUDYNE [Suspect]
     Indication: MACULAR DEGENERATION

REACTIONS (3)
  - CHOROIDAL NEOVASCULARISATION [None]
  - DETACHMENT OF RETINAL PIGMENT EPITHELIUM [None]
  - VISUAL ACUITY REDUCED [None]
